FAERS Safety Report 9951875 (Version 1)
Quarter: 2014Q1

REPORT INFORMATION
  Report Type: Report from Study
  Country: US (occurrence: US)
  Receive Date: 20140304
  Receipt Date: 20140304
  Transmission Date: 20141002
  Serious: No
  Sender: FDA-Public Use
  Company Number: US-ABBVIE-13P-163-1072519-00

PATIENT
  Age: 42 Year
  Sex: Female

DRUGS (3)
  1. HUMIRA [Suspect]
     Indication: CROHN^S DISEASE
     Dates: start: 20121108
  2. PENTASA [Concomitant]
     Indication: CROHN^S DISEASE
     Dosage: 250MG X 2 FOUR TIMES A DAY = 2000MG
  3. TRAMADOL [Concomitant]
     Indication: PAIN
     Dosage: TWICE A DAY OR AS REQUIRED

REACTIONS (2)
  - Hot flush [Recovered/Resolved]
  - Seasonal allergy [Recovered/Resolved]
